FAERS Safety Report 13462642 (Version 2)
Quarter: 2017Q2

REPORT INFORMATION
  Report Type: Spontaneous
  Country: JP (occurrence: JP)
  Receive Date: 20170420
  Receipt Date: 20170426
  Transmission Date: 20170830
  Serious: Yes (Hospitalization)
  Sender: FDA-Public Use
  Company Number: JP-CELLTRION INC.-2017JP003100

PATIENT

DRUGS (5)
  1. INFLIXIMAB BS FOR I.V. INFUSION100 MG [NK] [Suspect]
     Active Substance: INFLIXIMAB
     Indication: CROHN^S DISEASE
     Dosage: 322 MG/DAY
     Route: 042
     Dates: start: 20170105, end: 20170105
  2. CHLOR-TRIMETON [Concomitant]
     Active Substance: CHLORPHENIRAMINE MALEATE
     Dosage: 10 MG, DAILY
     Route: 042
     Dates: end: 20170105
  3. LECTISOL [Concomitant]
     Active Substance: DAPSONE
     Indication: ACNE
     Dosage: UNK
     Route: 048
     Dates: start: 201604, end: 201703
  4. GASTER [Concomitant]
     Active Substance: FAMOTIDINE
     Dosage: 20 MG, DAILY
     Route: 042
     Dates: end: 20170105
  5. PENTASA [Concomitant]
     Active Substance: MESALAMINE
     Indication: CROHN^S DISEASE
     Dosage: UNK
     Route: 048
     Dates: start: 2009, end: 201703

REACTIONS (2)
  - Abdominal pain [Unknown]
  - Henoch-Schonlein purpura [Recovering/Resolving]

NARRATIVE: CASE EVENT DATE: 201703
